FAERS Safety Report 24641551 (Version 2)
Quarter: 2024Q4

REPORT INFORMATION
  Report Type: Spontaneous
  Country: US (occurrence: US)
  Receive Date: 20241120
  Receipt Date: 20241128
  Transmission Date: 20250115
  Serious: No
  Sender: ELI LILLY AND COMPANY
  Company Number: US-ELI_LILLY_AND_COMPANY-US202411012261

PATIENT
  Age: 46 Year
  Sex: Female

DRUGS (40)
  1. ZEPBOUND [Suspect]
     Active Substance: TIRZEPATIDE
     Indication: Weight control
     Dosage: 2.5 MG, UNKNOWN
     Route: 058
     Dates: start: 202408
  2. ZEPBOUND [Suspect]
     Active Substance: TIRZEPATIDE
     Indication: Weight control
     Dosage: 2.5 MG, UNKNOWN
     Route: 058
     Dates: start: 202408
  3. ZEPBOUND [Suspect]
     Active Substance: TIRZEPATIDE
     Indication: Weight control
     Dosage: 2.5 MG, UNKNOWN
     Route: 058
     Dates: start: 202408
  4. ZEPBOUND [Suspect]
     Active Substance: TIRZEPATIDE
     Indication: Weight control
     Dosage: 2.5 MG, UNKNOWN
     Route: 058
     Dates: start: 202408
  5. ZEPBOUND [Suspect]
     Active Substance: TIRZEPATIDE
     Indication: Menopause
  6. ZEPBOUND [Suspect]
     Active Substance: TIRZEPATIDE
     Indication: Menopause
  7. ZEPBOUND [Suspect]
     Active Substance: TIRZEPATIDE
     Indication: Menopause
  8. ZEPBOUND [Suspect]
     Active Substance: TIRZEPATIDE
     Indication: Menopause
  9. ZEPBOUND [Suspect]
     Active Substance: TIRZEPATIDE
     Indication: Weight control
     Dosage: 5 MG, UNKNOWN
     Route: 058
  10. ZEPBOUND [Suspect]
     Active Substance: TIRZEPATIDE
     Indication: Weight control
     Dosage: 5 MG, UNKNOWN
     Route: 058
  11. ZEPBOUND [Suspect]
     Active Substance: TIRZEPATIDE
     Indication: Weight control
     Dosage: 5 MG, UNKNOWN
     Route: 058
  12. ZEPBOUND [Suspect]
     Active Substance: TIRZEPATIDE
     Indication: Weight control
     Dosage: 5 MG, UNKNOWN
     Route: 058
  13. ZEPBOUND [Suspect]
     Active Substance: TIRZEPATIDE
     Indication: Menopause
  14. ZEPBOUND [Suspect]
     Active Substance: TIRZEPATIDE
     Indication: Menopause
  15. ZEPBOUND [Suspect]
     Active Substance: TIRZEPATIDE
     Indication: Menopause
  16. ZEPBOUND [Suspect]
     Active Substance: TIRZEPATIDE
     Indication: Menopause
  17. ZEPBOUND [Suspect]
     Active Substance: TIRZEPATIDE
     Indication: Weight control
     Dosage: 7.5 MG, UNKNOWN
     Route: 058
  18. ZEPBOUND [Suspect]
     Active Substance: TIRZEPATIDE
     Indication: Weight control
     Dosage: 7.5 MG, UNKNOWN
     Route: 058
  19. ZEPBOUND [Suspect]
     Active Substance: TIRZEPATIDE
     Indication: Weight control
     Dosage: 7.5 MG, UNKNOWN
     Route: 058
  20. ZEPBOUND [Suspect]
     Active Substance: TIRZEPATIDE
     Indication: Weight control
     Dosage: 7.5 MG, UNKNOWN
     Route: 058
  21. ZEPBOUND [Suspect]
     Active Substance: TIRZEPATIDE
     Indication: Menopause
  22. ZEPBOUND [Suspect]
     Active Substance: TIRZEPATIDE
     Indication: Menopause
  23. ZEPBOUND [Suspect]
     Active Substance: TIRZEPATIDE
     Indication: Menopause
  24. ZEPBOUND [Suspect]
     Active Substance: TIRZEPATIDE
     Indication: Menopause
  25. ZEPBOUND [Suspect]
     Active Substance: TIRZEPATIDE
     Indication: Weight control
     Dosage: 10 MG, UNKNOWN
     Route: 058
  26. ZEPBOUND [Suspect]
     Active Substance: TIRZEPATIDE
     Indication: Weight control
     Dosage: 10 MG, UNKNOWN
     Route: 058
  27. ZEPBOUND [Suspect]
     Active Substance: TIRZEPATIDE
     Indication: Weight control
     Dosage: 10 MG, UNKNOWN
     Route: 058
  28. ZEPBOUND [Suspect]
     Active Substance: TIRZEPATIDE
     Indication: Weight control
     Dosage: 10 MG, UNKNOWN
     Route: 058
  29. ZEPBOUND [Suspect]
     Active Substance: TIRZEPATIDE
     Indication: Menopause
  30. ZEPBOUND [Suspect]
     Active Substance: TIRZEPATIDE
     Indication: Menopause
  31. ZEPBOUND [Suspect]
     Active Substance: TIRZEPATIDE
     Indication: Menopause
  32. ZEPBOUND [Suspect]
     Active Substance: TIRZEPATIDE
     Indication: Menopause
  33. ZEPBOUND [Suspect]
     Active Substance: TIRZEPATIDE
     Indication: Weight control
     Dosage: 12.5 MG, UNKNOWN
     Route: 058
  34. ZEPBOUND [Suspect]
     Active Substance: TIRZEPATIDE
     Indication: Weight control
     Dosage: 12.5 MG, UNKNOWN
     Route: 058
  35. ZEPBOUND [Suspect]
     Active Substance: TIRZEPATIDE
     Indication: Weight control
     Dosage: 12.5 MG, UNKNOWN
     Route: 058
  36. ZEPBOUND [Suspect]
     Active Substance: TIRZEPATIDE
     Indication: Weight control
     Dosage: 12.5 MG, UNKNOWN
     Route: 058
  37. ZEPBOUND [Suspect]
     Active Substance: TIRZEPATIDE
     Indication: Menopause
  38. ZEPBOUND [Suspect]
     Active Substance: TIRZEPATIDE
     Indication: Menopause
  39. ZEPBOUND [Suspect]
     Active Substance: TIRZEPATIDE
     Indication: Menopause
  40. ZEPBOUND [Suspect]
     Active Substance: TIRZEPATIDE
     Indication: Menopause

REACTIONS (3)
  - Food craving [Unknown]
  - Illness [Unknown]
  - Injection site pain [Unknown]

NARRATIVE: CASE EVENT DATE: 20241101
